FAERS Safety Report 24336141 (Version 1)
Quarter: 2024Q3

REPORT INFORMATION
  Report Type: Report from Study
  Country: US (occurrence: US)
  Receive Date: 20240919
  Receipt Date: 20240919
  Transmission Date: 20241017
  Serious: Yes (Other)
  Sender: JOHNSON AND JOHNSON
  Company Number: US-JNJFOC-20240941155

PATIENT
  Age: 46 Year
  Sex: Female

DRUGS (5)
  1. SPRAVATO [Suspect]
     Active Substance: ESKETAMINE
     Indication: Depression
     Dosage: ^56 MG, 11 TOTAL DOSES^
     Dates: start: 20201221, end: 20210223
  2. SPRAVATO [Suspect]
     Active Substance: ESKETAMINE
     Dosage: ^84 MG, 75 TOTAL DOSES^
     Dates: start: 20210309, end: 20230125
  3. SPRAVATO [Suspect]
     Active Substance: ESKETAMINE
     Dosage: ^56 MG, 6 TOTAL DOSES^
     Dates: start: 20230201, end: 20230712
  4. SPRAVATO [Suspect]
     Active Substance: ESKETAMINE
     Dosage: ^84 MG, 54 TOTAL DOSES^
     Dates: start: 20230714, end: 20240830
  5. SPRAVATO [Suspect]
     Active Substance: ESKETAMINE
     Dosage: ^84 MG, RECENT DOSE ADMINISTERED^
     Dates: start: 20240913, end: 20240913

REACTIONS (3)
  - Hypertension [Unknown]
  - Bradycardia [Unknown]
  - Sedation [Recovered/Resolved]

NARRATIVE: CASE EVENT DATE: 20240913
